FAERS Safety Report 19424120 (Version 2)
Quarter: 2021Q3

REPORT INFORMATION
  Report Type: Spontaneous
  Country: US (occurrence: US)
  Receive Date: 20210616
  Receipt Date: 20210701
  Transmission Date: 20211014
  Serious: No
  Sender: FDA-Public Use
  Company Number: US-IGSA-BIG0014815

PATIENT
  Age: 53 Year
  Sex: Female
  Weight: 82 kg

DRUGS (18)
  1. ACETAMINOPHEN. [Concomitant]
     Active Substance: ACETAMINOPHEN
     Indication: PREMEDICATION
     Dosage: 650 MILLIGRAM
     Route: 048
  2. FENTANYL. [Concomitant]
     Active Substance: FENTANYL
  3. XIFAXAN [Concomitant]
     Active Substance: RIFAXIMIN
  4. ZOFRAN [Concomitant]
     Active Substance: ONDANSETRON HYDROCHLORIDE
  5. METHYLPREDNISOLONE. [Concomitant]
     Active Substance: METHYLPREDNISOLONE
     Indication: PREMEDICATION
     Dosage: 40 MILLIGRAM
     Route: 042
     Dates: start: 20210429
  6. DEXTROSE IN HALF SALINE CHOONGWAE [Concomitant]
     Indication: PREMEDICATION
     Dosage: 500 MILLILITER
     Route: 042
     Dates: start: 20210429
  7. PREMARIN [Concomitant]
     Active Substance: ESTROGENS, CONJUGATED
  8. LEVOTHYROXINE. [Concomitant]
     Active Substance: LEVOTHYROXINE
  9. MULTIVITAMINS [VITAMINS NOS] [Concomitant]
     Active Substance: VITAMINS
  10. DIPHENHYDRAMINE. [Concomitant]
     Active Substance: DIPHENHYDRAMINE
     Indication: PREMEDICATION
     Dosage: 25 MILLIGRAM
     Route: 042
     Dates: start: 20210429
  11. DEXTROSE WATER [Concomitant]
     Active Substance: DEXTROSE
     Indication: PREMEDICATION
     Dosage: 1000 MILLILITER
     Route: 042
     Dates: start: 20210429
  12. BUDESONIDE. [Concomitant]
     Active Substance: BUDESONIDE
  13. PREDNISONE. [Concomitant]
     Active Substance: PREDNISONE
  14. ONDANSETRON [Concomitant]
     Active Substance: ONDANSETRON
     Indication: PREMEDICATION
     Dosage: 4 MILLIGRAM
     Route: 042
     Dates: start: 20210429
  15. AZITHROMYCIN ANHYDROUS. [Concomitant]
     Active Substance: AZITHROMYCIN ANHYDROUS
  16. GAMUNEX?C [Suspect]
     Active Substance: HUMAN IMMUNOGLOBULIN G
     Indication: IMMUNODEFICIENCY COMMON VARIABLE
     Dosage: 35 GRAM, SINGLE
     Route: 042
     Dates: start: 20210429, end: 20210429
  17. BACTRIM DS [Concomitant]
     Active Substance: SULFAMETHOXAZOLE\TRIMETHOPRIM
  18. URSODIOL. [Concomitant]
     Active Substance: URSODIOL

REACTIONS (2)
  - Rash erythematous [Recovered/Resolved]
  - Urticaria [Recovered/Resolved]

NARRATIVE: CASE EVENT DATE: 20210429
